FAERS Safety Report 11760365 (Version 2)
Quarter: 2015Q4

REPORT INFORMATION
  Report Type: Report from Study
  Country: US (occurrence: US)
  Receive Date: 20151120
  Receipt Date: 20151130
  Transmission Date: 20160304
  Serious: Yes (Hospitalization, Other)
  Sender: FDA-Public Use
  Company Number: US-AMGEN-USASL2015120143

PATIENT
  Age: 55 Year
  Sex: Female

DRUGS (4)
  1. BENADRYL [Suspect]
     Active Substance: DIPHENHYDRAMINE HYDROCHLORIDE
     Indication: PRURITUS
  2. ENBREL [Suspect]
     Active Substance: ETANERCEPT
     Indication: PSORIASIS
     Dosage: 50 MG, QWK
     Route: 065
     Dates: start: 2003, end: 2015
  3. BENADRYL [Suspect]
     Active Substance: DIPHENHYDRAMINE HYDROCHLORIDE
     Indication: BURNING SENSATION
  4. BENADRYL [Suspect]
     Active Substance: DIPHENHYDRAMINE HYDROCHLORIDE
     Indication: RASH GENERALISED
     Dosage: UNK
     Route: 065

REACTIONS (11)
  - Arthralgia [Unknown]
  - Skin odour abnormal [Unknown]
  - Hospitalisation [Unknown]
  - Condition aggravated [Unknown]
  - Skin burning sensation [Unknown]
  - Skin haemorrhage [Unknown]
  - Rash generalised [Unknown]
  - Pruritus [Unknown]
  - Drug ineffective [Unknown]
  - Pain [Unknown]
  - Discomfort [Unknown]

NARRATIVE: CASE EVENT DATE: 2015
